FAERS Safety Report 10008917 (Version 2)
Quarter: 2014Q1

REPORT INFORMATION
  Report Type: Spontaneous
  Country: US (occurrence: US)
  Receive Date: 20140313
  Receipt Date: 20140313
  Transmission Date: 20141002
  Serious: Yes (Other)
  Sender: FDA-Public Use
  Company Number: US-INCYTE CORPORATION-2012IN000952

PATIENT
  Age: 73 Year
  Sex: Male
  Weight: 79.3 kg

DRUGS (19)
  1. JAKAFI [Suspect]
     Indication: MYELOFIBROSIS
     Dosage: 5 MG, BID
     Route: 048
     Dates: start: 20120419, end: 20120523
  2. JAKAFI [Suspect]
     Dosage: 5 MG, QD
     Route: 048
     Dates: start: 20120524, end: 2012
  3. JAKAFI [Suspect]
     Dosage: 5 MG, BID
     Route: 048
     Dates: start: 2012
  4. HYDROXYZINE HYDROCHLORIDE [Concomitant]
     Indication: PRURITUS
     Dosage: 50 MG, PRN
     Route: 048
  5. LOMOTIL [Concomitant]
     Indication: DIARRHOEA
     Dosage: 1 DF, PRN
     Route: 048
  6. ADVAIR [Concomitant]
     Indication: CHRONIC OBSTRUCTIVE PULMONARY DISEASE
     Dosage: 1 PUFF, BID
     Route: 050
  7. ALFUZOSIN [Concomitant]
     Indication: NEPHROLITHIASIS
     Dosage: 10 MG, QD
     Route: 048
  8. CLONAZEPAM [Concomitant]
     Indication: ANXIETY
     Dosage: 1 MG, PRN
     Route: 048
  9. LIPITOR [Concomitant]
     Indication: BLOOD CHOLESTEROL
     Dosage: 20 MG, QD
     Route: 048
  10. METHYLPHENIDATE [Concomitant]
     Dosage: 10 MG, QD
     Route: 048
  11. MIRTAZAPINE [Concomitant]
     Indication: DEPRESSION
     Dosage: 15 MG, QD
     Route: 048
  12. MULTIVITAMIN [Concomitant]
     Indication: SUPPLEMENTATION THERAPY
     Dosage: 1 TAB, QD
     Route: 048
  13. OXYCONTIN [Concomitant]
     Indication: PAIN
     Dosage: 1 DF, PRN
     Route: 048
  14. PLAVIX [Concomitant]
     Indication: CARDIAC DISORDER
     Dosage: 75 MG, QD
     Route: 048
  15. SERTRALINE [Concomitant]
     Indication: DEPRESSION
     Dosage: 100 MG, QD
     Route: 048
  16. SYNTHROID [Concomitant]
     Indication: THYROID DISORDER
     Dosage: 1 DF, QD
     Route: 048
  17. TOPROL XL [Concomitant]
     Indication: BLOOD PRESSURE
     Dosage: 50 MG, QD
     Route: 048
  18. VANTIN [Concomitant]
     Indication: ANTIBIOTIC THERAPY
     Dosage: 200 MG, BID
     Route: 048
  19. XOPENEX HFA [Concomitant]
     Indication: DYSPNOEA
     Dosage: 1 PUFF, PRN
     Route: 050

REACTIONS (1)
  - Thrombocytopenia [Not Recovered/Not Resolved]
